FAERS Safety Report 15538615 (Version 1)
Quarter: 2018Q4

REPORT INFORMATION
  Report Type: Report from Study
  Country: US (occurrence: US)
  Receive Date: 20181022
  Receipt Date: 20181022
  Transmission Date: 20190205
  Serious: No
  Sender: FDA-Public Use
  Company Number: PHEH2018US044081

PATIENT
  Sex: Female
  Weight: 124.72 kg

DRUGS (1)
  1. COSENTYX [Suspect]
     Active Substance: SECUKINUMAB
     Indication: PSORIASIS
     Dosage: 300 MG (2 PENS), UNK AT DAY 28 (DOSE 5) THEN EVERY 4 WEEKS AS DIRECTED
     Route: 058
     Dates: start: 201809

REACTIONS (1)
  - Bronchitis [Unknown]
